FAERS Safety Report 6346678-7 (Version None)
Quarter: 2009Q3

REPORT INFORMATION
  Report Type: 
  Country: None (occurrence: None)
  Receive Date: 20090904
  Receipt Date: 20090824
  Transmission Date: 20100115
  Serious: Yes (Other)
  Sender: FDA-Public Use
  Company Number: 2009AP003455

PATIENT
  Age: 68 Year
  Sex: Female

DRUGS (1)
  1. RISPERIDONE [Suspect]
     Dosage: PO
     Route: 048
     Dates: start: 20090408

REACTIONS (1)
  - DEEP VEIN THROMBOSIS [None]
